FAERS Safety Report 4806581-8 (Version None)
Quarter: 2005Q4

REPORT INFORMATION
  Report Type: 
  Country: None (occurrence: None)
  Receive Date: 20051019
  Receipt Date: 20050930
  Transmission Date: 20060501
  Serious: Yes (Hospitalization, Other)
  Sender: FDA-Public Use
  Company Number: USA0510109670

PATIENT
  Age: 12 Year
  Sex: Female
  Weight: 30 kg

DRUGS (3)
  1. STRATTERA [Suspect]
     Dosage: 68 MG
     Dates: start: 20040901
  2. DEPAKOTE [Concomitant]
  3. RISPERDAL [Concomitant]

REACTIONS (3)
  - AMINO ACID LEVEL INCREASED [None]
  - METABOLIC DISORDER [None]
  - MUSCLE TWITCHING [None]
